FAERS Safety Report 4512844-6 (Version None)
Quarter: 2004Q4

REPORT INFORMATION
  Report Type: 
  Country: None (occurrence: None)
  Receive Date: 20041119
  Receipt Date: 20041119
  Transmission Date: 20050328
  Serious: Yes (Congenital Anomaly, Other)
  Sender: FDA-Public Use
  Company Number: None

PATIENT
  Age: 23 Year
  Sex: Female
  Weight: 147.419 kg

DRUGS (1)
  1. DEPO-PROVERA [Suspect]
     Indication: CONTRACEPTION
     Dosage: EVERY 3 MO     INTRAVENOU
     Route: 042

REACTIONS (26)
  - ABDOMINAL PAIN UPPER [None]
  - ACNE [None]
  - AFFECT LABILITY [None]
  - ALOPECIA [None]
  - ANXIETY [None]
  - ARTHRALGIA [None]
  - BACK PAIN [None]
  - BREAST PAIN [None]
  - DEPRESSION [None]
  - DYSPNOEA [None]
  - FATIGUE [None]
  - FUNGAL INFECTION [None]
  - HAEMORRHAGE [None]
  - HEADACHE [None]
  - HIRSUTISM [None]
  - INFERTILITY [None]
  - IRRITABILITY [None]
  - KIDNEY INFECTION [None]
  - LIBIDO DECREASED [None]
  - MOOD SWINGS [None]
  - MUSCLE CRAMP [None]
  - NERVOUSNESS [None]
  - SUICIDAL IDEATION [None]
  - VISION BLURRED [None]
  - VULVOVAGINAL DRYNESS [None]
  - WEIGHT INCREASED [None]
